FAERS Safety Report 20921029 (Version 2)
Quarter: 2023Q2

REPORT INFORMATION
  Report Type: Spontaneous
  Country: US (occurrence: US)
  Receive Date: 20220606
  Receipt Date: 20230420
  Transmission Date: 20230721
  Serious: No
  Sender: FDA-Public Use
  Company Number: US-MYLANLABS-2022M1039414

PATIENT
  Sex: Male

DRUGS (1)
  1. SEMGLEE (INSULIN GLARGINE-YFGN) [Suspect]
     Active Substance: INSULIN GLARGINE-YFGN
     Indication: Hyperglycaemia
     Dosage: UNK
     Route: 058

REACTIONS (5)
  - Blood glucose increased [Unknown]
  - Device delivery system issue [Unknown]
  - Product dose omission issue [Unknown]
  - Device malfunction [Unknown]
  - Product substitution issue [Unknown]
